FAERS Safety Report 8558602-7 (Version None)
Quarter: 2012Q3

REPORT INFORMATION
  Report Type: 
  Country: None (occurrence: None)
  Receive Date: 20120801
  Receipt Date: 20120725
  Transmission Date: 20120928
  Serious: Yes (Death, Hospitalization)
  Sender: FDA-Public Use
  Company Number: DE-UCBSA-057379

PATIENT
  Sex: Male

DRUGS (11)
  1. MORPHINE SULFATE [Concomitant]
     Indication: POLYARTHRITIS
     Route: 048
     Dates: start: 20090101, end: 20120301
  2. PREDNISOLONE AS CORTISONE PULSE [Concomitant]
     Indication: POLYARTHRITIS
     Route: 048
     Dates: start: 20000101, end: 20120301
  3. FOLIC ACID [Concomitant]
     Indication: POLYARTHRITIS
     Route: 048
     Dates: start: 20030101, end: 20120301
  4. METFORMIN HYDROCHLORIDE [Concomitant]
     Indication: TYPE 2 DIABETES MELLITUS
     Route: 048
     Dates: start: 20090101, end: 20120301
  5. OMEPRAZOLE [Concomitant]
     Indication: PROPHYLAXIS
     Route: 048
     Dates: start: 20080101, end: 20120301
  6. MIRTAZAPINE [Concomitant]
     Indication: DEPRESSION
     Route: 048
     Dates: start: 20070101, end: 20120301
  7. METHOTREXATE [Concomitant]
     Dates: start: 20090501
  8. METHOTREXATE SODIUM [Concomitant]
     Indication: POLYARTHRITIS
     Route: 058
     Dates: start: 20030101, end: 20120301
  9. CIMZIA [Suspect]
     Dosage: NO OF DOSES-2
     Route: 058
     Dates: start: 20110930, end: 20111001
  10. CITALOPRAM HYDROBROMIDE [Concomitant]
     Indication: DEPRESSION
     Route: 048
     Dates: start: 20070101, end: 20120301
  11. METHOTREXATE [Concomitant]
     Dates: start: 20031101, end: 20080901

REACTIONS (2)
  - METASTATIC BRONCHIAL CARCINOMA [None]
  - NASOPHARYNGITIS [None]
